FAERS Safety Report 6705364-1 (Version None)
Quarter: 2010Q2

REPORT INFORMATION
  Report Type: 
  Country: None (occurrence: None)
  Receive Date: 20100503
  Receipt Date: 20100423
  Transmission Date: 20101027
  Serious: Yes (Other)
  Sender: FDA-Public Use
  Company Number: US-RB-007755-10

PATIENT
  Age: 27 Year
  Sex: Female

DRUGS (2)
  1. SUBOXONE [Suspect]
     Dosage: TAKES 8-24 MG DAILY
     Route: 060
     Dates: start: 20100416
  2. XANAX [Suspect]
     Dosage: UNKNOWN DOSING DETAILS
     Route: 065

REACTIONS (3)
  - CONVULSION [None]
  - FACE INJURY [None]
  - FALL [None]
